FAERS Safety Report 10368223 (Version 1)
Quarter: 2014Q3

REPORT INFORMATION
  Report Type: Spontaneous
  Country: US (occurrence: US)
  Receive Date: 20140807
  Receipt Date: 20140807
  Transmission Date: 20150326
  Serious: Yes (Hospitalization, Other)
  Sender: FDA-Public Use
  Company Number: US-ACTAVIS-2014-17028

PATIENT
  Age: 4 Year
  Sex: Female

DRUGS (2)
  1. EMLA [Suspect]
     Active Substance: LIDOCAINE\PRILOCAINE
     Indication: MOLLUSCUM CONTAGIOSUM
     Dosage: 45 MG, UNK (1125 MG LIDOCAINE)
     Route: 061
  2. EMLA [Suspect]
     Active Substance: LIDOCAINE\PRILOCAINE
     Indication: ECZEMA

REACTIONS (4)
  - Methaemoglobinaemia [Recovering/Resolving]
  - Convulsion [Recovering/Resolving]
  - Overdose [Recovering/Resolving]
  - Metabolic acidosis [Recovering/Resolving]
